FAERS Safety Report 4350494-5 (Version None)
Quarter: 2004Q2

REPORT INFORMATION
  Report Type: 
  Country: None (occurrence: None)
  Receive Date: 20040430
  Receipt Date: 20040301
  Transmission Date: 20050107
  Serious: Yes (Hospitalization)
  Sender: FDA-Public Use
  Company Number: US-BRISTOL-MYERS SQUIBB COMPANY-12521001

PATIENT
  Age: 79 Year
  Sex: Female

DRUGS (13)
  1. ABILIFY [Suspect]
     Indication: PARANOIA
     Route: 048
     Dates: start: 20040209, end: 20040214
  2. ABILIFY [Suspect]
     Indication: DELUSION
     Route: 048
     Dates: start: 20040209, end: 20040214
  3. DILANTIN [Concomitant]
     Dates: start: 20040209
  4. SYNTHROID [Concomitant]
     Dates: start: 20040209
  5. SINEMET [Concomitant]
     Dates: start: 20040209
  6. ACCUPRIL [Concomitant]
     Dates: start: 20040209
  7. EFFEXOR [Concomitant]
     Dates: start: 20040209
  8. INSULIN [Concomitant]
     Dates: start: 20040209
  9. ASPIRIN [Concomitant]
     Dates: start: 20040209
  10. PLAVIX [Concomitant]
     Dates: start: 20040209
  11. PRAVACHOL [Concomitant]
     Dates: start: 20040209
  12. PROTONIX [Concomitant]
     Dates: start: 20040209
  13. PROVIGIL [Concomitant]
     Dates: start: 20040209

REACTIONS (6)
  - BLOOD GLUCOSE INCREASED [None]
  - DYSPHAGIA [None]
  - LETHARGY [None]
  - REFUSAL OF TREATMENT BY RELATIVE [None]
  - SEDATION [None]
  - URINARY TRACT INFECTION [None]
